FAERS Safety Report 4801424-0 (Version None)
Quarter: 2005Q4

REPORT INFORMATION
  Report Type: 
  Country: None (occurrence: None)
  Receive Date: 20051011
  Receipt Date: 20051011
  Transmission Date: 20060501
  Serious: Yes (Hospitalization, Other)
  Sender: FDA-Public Use
  Company Number: None

PATIENT
  Sex: Male
  Weight: 47.8 kg

DRUGS (10)
  1. CYCLOPHOSPHAMIDE [Suspect]
     Indication: ACUTE LYMPHOCYTIC LEUKAEMIA
     Dosage: SEE IMAGE
     Dates: start: 20050913, end: 20050913
  2. CYCLOPHOSPHAMIDE [Suspect]
     Indication: ACUTE LYMPHOCYTIC LEUKAEMIA
     Dosage: SEE IMAGE
     Dates: start: 20050809
  3. CYTARABINE [Suspect]
     Dosage: SEE IMAGE
     Dates: start: 20050913, end: 20050922
  4. CYTARABINE [Suspect]
     Dosage: SEE IMAGE
     Dates: start: 20050809
  5. THIOGUANINE [Suspect]
     Dosage: SEE IMAGE
     Dates: start: 20050913, end: 20050925
  6. THIOGUANINE [Suspect]
     Dosage: SEE IMAGE
     Dates: start: 20050809
  7. METHOTREXATE [Suspect]
     Dosage: SEE IMAGE
     Route: 037
     Dates: start: 20050926, end: 20050926
  8. METHOTREXATE [Suspect]
     Dosage: SEE IMAGE
     Route: 037
     Dates: start: 20050809
  9. VINCRISTINE [Suspect]
     Dosage: SEE IMAGE
     Dates: start: 20051003, end: 20051003
  10. VINCRISTINE [Suspect]
     Dosage: SEE IMAGE
     Dates: start: 20050809

REACTIONS (7)
  - COORDINATION ABNORMAL [None]
  - DYSARTHRIA [None]
  - FACIAL PALSY [None]
  - HEMIPARESIS [None]
  - LEUKOENCEPHALOPATHY [None]
  - MOVEMENT DISORDER [None]
  - SPEECH DISORDER [None]
